FAERS Safety Report 21020129 (Version 1)
Quarter: 2022Q2

REPORT INFORMATION
  Report Type: Report from Study
  Country: NL (occurrence: None)
  Receive Date: 20220628
  Receipt Date: 20220628
  Transmission Date: 20220720
  Serious: Yes (Hospitalization)
  Sender: FDA-Public Use
  Company Number: NL-ROCHE-3124362

PATIENT
  Age: 80 Year
  Sex: Male
  Weight: 103.5 kg

DRUGS (7)
  1. PRALSETINIB [Suspect]
     Active Substance: PRALSETINIB
     Indication: Non-small cell lung cancer metastatic
     Dosage: MOST RECENT DOSE OF DRUG PRIOR TO ADVERSE EVENT: 22/JUN/2022
     Route: 048
     Dates: start: 20220601
  2. OMEPRAZOLE [Concomitant]
     Active Substance: OMEPRAZOLE
  3. RIVAROXABAN [Concomitant]
     Active Substance: RIVAROXABAN
  4. ROSUVASTATIN [Concomitant]
     Active Substance: ROSUVASTATIN
  5. LEVOTHYROXINE [Concomitant]
     Active Substance: LEVOTHYROXINE
     Dosage: 75 MCG
     Dates: start: 20050728
  6. MAGNESIUM [Concomitant]
     Active Substance: MAGNESIUM
     Dates: start: 20210105
  7. ACETAMINOPHEN [Concomitant]
     Active Substance: ACETAMINOPHEN

REACTIONS (1)
  - Acute kidney injury [Unknown]

NARRATIVE: CASE EVENT DATE: 20220622
